FAERS Safety Report 15331306 (Version 5)
Quarter: 2019Q3

REPORT INFORMATION
  Report Type: Spontaneous
  Country: DE (occurrence: DE)
  Receive Date: 20180829
  Receipt Date: 20190802
  Transmission Date: 20191004
  Serious: Yes (Hospitalization)
  Sender: FDA-Public Use
  Company Number: PHHY2018DE080349

PATIENT
  Age: 67 Year
  Sex: Male
  Weight: 71 kg

DRUGS (4)
  1. TOCILIZUMAB. [Suspect]
     Active Substance: TOCILIZUMAB
     Dosage: 162 MG, UNK
     Route: 058
     Dates: start: 20180606
  2. PREDNISOLON [Suspect]
     Active Substance: PREDNISOLONE
     Indication: RHEUMATOID ARTHRITIS
     Dosage: 10 MG, QD
     Route: 048
     Dates: start: 20171113
  3. TOCILIZUMAB. [Suspect]
     Active Substance: TOCILIZUMAB
     Indication: RHEUMATOID ARTHRITIS
     Dosage: 162 MG, QW (PAUSED TILL 11/MAY/2018)
     Route: 058
     Dates: start: 20180417
  4. PREDNISOLON [Suspect]
     Active Substance: PREDNISOLONE
     Dosage: 5 MG, UNK
     Route: 048

REACTIONS (5)
  - Gait disturbance [Recovered/Resolved]
  - Dizziness [Unknown]
  - Cerebrovascular accident [Recovered/Resolved]
  - Nasopharyngitis [Recovered/Resolved]
  - Vertigo [Recovered/Resolved]

NARRATIVE: CASE EVENT DATE: 20180511
